FAERS Safety Report 4631615-3 (Version None)
Quarter: 2005Q2

REPORT INFORMATION
  Report Type: 
  Country: None (occurrence: None)
  Receive Date: 20050407
  Receipt Date: 20050331
  Transmission Date: 20051028
  Serious: No
  Sender: FDA-Public Use
  Company Number: 2005PK00521

PATIENT
  Age: 87 Year
  Sex: Male

DRUGS (9)
  1. SEROQUEL [Suspect]
     Dosage: 12.5 MG TID PO
     Route: 048
  2. SEROQUEL [Suspect]
     Dosage: 50 MG DAILY PO
     Route: 048
  3. DIGIMERCK [Concomitant]
  4. DELIX [Concomitant]
  5. DILATREND [Concomitant]
  6. ISOSORBIDE DINITRATE [Concomitant]
  7. CORVATON [Concomitant]
  8. FUROSEMIDE [Concomitant]
  9. ASPIRIN [Concomitant]

REACTIONS (2)
  - ATRIOVENTRICULAR BLOCK [None]
  - ELECTROCARDIOGRAM PQ INTERVAL PROLONGED [None]
